FAERS Safety Report 21290212 (Version 1)
Quarter: 2022Q3

REPORT INFORMATION
  Report Type: Spontaneous
  Country: US (occurrence: US)
  Receive Date: 20220902
  Receipt Date: 20220902
  Transmission Date: 20221027
  Serious: Yes (Hospitalization)
  Sender: FDA-Public Use
  Company Number: US-ELI_LILLY_AND_COMPANY-US202208013485

PATIENT
  Age: 65 Year
  Sex: Female

DRUGS (5)
  1. HUMALOG [Suspect]
     Active Substance: INSULIN LISPRO
     Indication: Type 1 diabetes mellitus
     Dosage: 2 U AT MEALS, THREE TIMES A DAY WITH SLIDING SCALE
     Route: 065
     Dates: start: 202207
  2. HUMALOG [Suspect]
     Active Substance: INSULIN LISPRO
     Dosage: 2 U AT MEALS, THREE TIMES A DAY WITH SLIDING SCALE
     Route: 065
     Dates: start: 20220802
  3. OMALIZUMAB [Concomitant]
     Active Substance: OMALIZUMAB
     Indication: Hypersensitivity
  4. LANTUS [Concomitant]
     Active Substance: INSULIN GLARGINE
     Indication: Diabetic ketoacidosis
  5. METFORMIN [Concomitant]
     Active Substance: METFORMIN HYDROCHLORIDE
     Indication: Type 1 diabetes mellitus
     Dosage: UNK UNK, UNKNOWN
     Route: 065

REACTIONS (5)
  - Diabetic ketoacidosis [Unknown]
  - Oedema peripheral [Unknown]
  - Fatigue [Unknown]
  - Drug hypersensitivity [Recovering/Resolving]
  - Wrong technique in product usage process [Unknown]

NARRATIVE: CASE EVENT DATE: 20220701
